FAERS Safety Report 8364996-8 (Version None)
Quarter: 2012Q2

REPORT INFORMATION
  Report Type: 
  Country: None (occurrence: None)
  Receive Date: 20120516
  Receipt Date: 20120509
  Transmission Date: 20120825
  Serious: Yes (Other)
  Sender: FDA-Public Use
  Company Number: US-GLAXOSMITHKLINE-A0976983A

PATIENT
  Sex: Male

DRUGS (2)
  1. LAMICTAL XR [Suspect]
     Indication: CONVULSION
     Dosage: 250MGD PER DAY
     Route: 048
  2. BLOOD PRESSURE MEDICATION [Concomitant]

REACTIONS (3)
  - DRUG ADMINISTRATION ERROR [None]
  - CONVULSION [None]
  - INCORRECT STORAGE OF DRUG [None]
